FAERS Safety Report 13376188 (Version 2)
Quarter: 2017Q2

REPORT INFORMATION
  Report Type: Spontaneous
  Country: US (occurrence: US)
  Receive Date: 20170328
  Receipt Date: 20170508
  Transmission Date: 20170830
  Serious: Yes (Hospitalization, Other)
  Sender: FDA-Public Use
  Company Number: US-AUROBINDO-AUR-APL-2017-31268

PATIENT
  Age: 11 Year
  Sex: Male

DRUGS (2)
  1. LAMOTRIGINE. [Suspect]
     Active Substance: LAMOTRIGINE
     Dosage: UNK, DOSE INCREASED BY 33 %
     Route: 065
  2. LAMOTRIGINE. [Suspect]
     Active Substance: LAMOTRIGINE
     Indication: PRODUCT USED FOR UNKNOWN INDICATION
     Dosage: UNK, UNKNOWN DOSE
     Route: 065

REACTIONS (8)
  - Lymphadenopathy [Unknown]
  - Drug reaction with eosinophilia and systemic symptoms [Recovering/Resolving]
  - Transaminases increased [Unknown]
  - Hepatitis [Unknown]
  - Pyrexia [Unknown]
  - Parvovirus B19 infection [Unknown]
  - Rash erythematous [Unknown]
  - Face oedema [Unknown]
